FAERS Safety Report 10099724 (Version 2)
Quarter: 2014Q2

REPORT INFORMATION
  Report Type: Spontaneous
  Country: US (occurrence: US)
  Receive Date: 20140423
  Receipt Date: 20140423
  Transmission Date: 20141212
  Serious: No
  Sender: FDA-Public Use
  Company Number: US-GILEAD-2013-0071194

PATIENT
  Age: 58 Year
  Sex: Female
  Weight: 82.54 kg

DRUGS (14)
  1. LETAIRIS [Suspect]
     Indication: PRODUCT USED FOR UNKNOWN INDICATION
     Dosage: 5 MG, QD
     Dates: start: 20091006
  2. FOLVITE                            /00024201/ [Concomitant]
  3. METHOTREXATE [Concomitant]
  4. NORCO [Concomitant]
  5. MINOCIN [Concomitant]
  6. DELTASONE                          /00016001/ [Concomitant]
  7. NORVASC [Concomitant]
  8. ZOCOR [Concomitant]
  9. ACCURETIC [Concomitant]
  10. VENTOLIN HFA [Concomitant]
  11. ASPIRIN [Concomitant]
  12. OMEGA 3                            /01334101/ [Concomitant]
  13. PRILOSEC                           /00661201/ [Concomitant]
  14. ZYRTEC [Concomitant]

REACTIONS (5)
  - Pharyngitis streptococcal [Recovered/Resolved]
  - Oral candidiasis [Unknown]
  - Vitamin D deficiency [Unknown]
  - Dry mouth [Unknown]
  - Nasal dryness [Unknown]
